FAERS Safety Report 5893155-3 (Version None)
Quarter: 2008Q3

REPORT INFORMATION
  Report Type: 
  Country: None (occurrence: None)
  Receive Date: 20080923
  Receipt Date: 20070828
  Transmission Date: 20090109
  Serious: No
  Sender: FDA-Public Use
  Company Number: US-ASTRAZENECA-2007UW20547

PATIENT
  Age: 45 Year
  Sex: Female

DRUGS (6)
  1. SEROQUEL [Suspect]
     Dosage: 400 MG HS AND 100 MG MORNING
     Route: 048
  2. LAMICTAL [Concomitant]
  3. WELLBUTRIN XL [Concomitant]
  4. CLARITIN [Concomitant]
  5. PREVACID [Concomitant]
  6. NASNACORT [Concomitant]

REACTIONS (2)
  - HALLUCINATION, VISUAL [None]
  - VISION BLURRED [None]
